FAERS Safety Report 11543879 (Version 1)
Quarter: 2015Q3

REPORT INFORMATION
  Report Type: Spontaneous
  Country: US (occurrence: US)
  Receive Date: 20150924
  Receipt Date: 20150924
  Transmission Date: 20151125
  Serious: No
  Sender: FDA-Public Use
  Company Number: US-ASTRAZENECA-2015SE89202

PATIENT
  Age: 20723 Day
  Sex: Female
  Weight: 65.8 kg

DRUGS (6)
  1. VALIUM [Concomitant]
     Active Substance: DIAZEPAM
     Indication: PANIC ATTACK
     Route: 048
     Dates: start: 2005
  2. VALIUM [Concomitant]
     Active Substance: DIAZEPAM
     Indication: SLEEP DISORDER
     Route: 048
     Dates: start: 2005
  3. METHADONE [Concomitant]
     Active Substance: METHADONE HYDROCHLORIDE
     Indication: PAIN
     Route: 048
     Dates: start: 2005
  4. MOVANTIK [Suspect]
     Active Substance: NALOXEGOL OXALATE
     Indication: CONSTIPATION
     Route: 048
     Dates: start: 20150822
  5. MOVANTIK [Suspect]
     Active Substance: NALOXEGOL OXALATE
     Indication: CONSTIPATION
     Route: 048
     Dates: end: 20150830
  6. VALIUM [Concomitant]
     Active Substance: DIAZEPAM
     Indication: MUSCLE RELAXANT THERAPY
     Route: 048
     Dates: start: 2005

REACTIONS (6)
  - Dehydration [Unknown]
  - Malaise [Not Recovered/Not Resolved]
  - Retching [Unknown]
  - Vision blurred [Not Recovered/Not Resolved]
  - Intervertebral disc protrusion [Unknown]
  - Contusion [Unknown]

NARRATIVE: CASE EVENT DATE: 20150822
